FAERS Safety Report 7539618-6 (Version None)
Quarter: 2011Q2

REPORT INFORMATION
  Report Type: 
  Country: None (occurrence: None)
  Receive Date: 20110610
  Receipt Date: 20110603
  Transmission Date: 20111010
  Serious: Yes (Other)
  Sender: FDA-Public Use
  Company Number: US-PFIZER INC-2011121577

PATIENT
  Sex: Female
  Weight: 111 kg

DRUGS (3)
  1. TRICOR [Suspect]
     Indication: BLOOD TRIGLYCERIDES
     Dosage: 145 MG, DAILY
     Route: 048
  2. LIPITOR [Suspect]
     Indication: BLOOD CHOLESTEROL INCREASED
     Dosage: 20MG DAILY
     Route: 048
     Dates: start: 20050101
  3. LIPITOR [Suspect]
     Dosage: 10 MG, 1X/DAY
     Dates: end: 20110602

REACTIONS (4)
  - MUSCLE SPASMS [None]
  - PAIN IN EXTREMITY [None]
  - BLOOD TRIGLYCERIDES INCREASED [None]
  - VASCULAR STENOSIS [None]
